FAERS Safety Report 9539995 (Version 1)
Quarter: 2013Q3

REPORT INFORMATION
  Report Type: Spontaneous
  Country: FR (occurrence: FR)
  Receive Date: 20130920
  Receipt Date: 20130920
  Transmission Date: 20140515
  Serious: Yes (Hospitalization, Other)
  Sender: FDA-Public Use
  Company Number: FR-JNJFOC-20130903918

PATIENT
  Age: 85 Year
  Sex: Female

DRUGS (14)
  1. RISPERDAL ORO [Suspect]
     Indication: PRODUCT USED FOR UNKNOWN INDICATION
     Route: 048
  2. RISPERDAL ORO [Suspect]
     Indication: PRODUCT USED FOR UNKNOWN INDICATION
     Route: 048
  3. MODOPAR [Suspect]
     Indication: PARKINSON^S DISEASE
     Route: 048
     Dates: end: 20121119
  4. DEPAKOTE [Suspect]
     Indication: MANIA
     Route: 048
  5. DEPAKOTE [Suspect]
     Indication: MANIA
     Route: 048
  6. DEPAKOTE [Suspect]
     Indication: EPILEPSY
     Route: 048
  7. DEPAKOTE [Suspect]
     Indication: EPILEPSY
     Route: 048
  8. ARTANE [Suspect]
     Indication: PARKINSON^S DISEASE
     Route: 048
     Dates: end: 20121110
  9. TRIVASTAL [Suspect]
     Indication: PARKINSON^S DISEASE
     Route: 048
     Dates: end: 20121119
  10. SERESTA [Suspect]
     Indication: DEPRESSION
     Route: 065
  11. SERESTA [Suspect]
     Indication: DEPRESSION
     Route: 065
  12. KARDEGIC [Concomitant]
     Indication: THROMBOSIS
     Route: 048
  13. LEVOTHYROX [Concomitant]
     Indication: HYPOTHYROIDISM
     Route: 048
  14. FORLAX [Concomitant]
     Indication: CONSTIPATION
     Route: 048

REACTIONS (3)
  - Confusional state [Not Recovered/Not Resolved]
  - Lung disorder [Unknown]
  - Sepsis [Unknown]
